FAERS Safety Report 5897171-7 (Version None)
Quarter: 2008Q3

REPORT INFORMATION
  Report Type: 
  Country: None (occurrence: None)
  Receive Date: 20080923
  Receipt Date: 20080910
  Transmission Date: 20090109
  Serious: Yes (Hospitalization)
  Sender: FDA-Public Use
  Company Number: 237992J08USA

PATIENT
  Age: 42 Year
  Sex: Female
  Weight: 58.9676 kg

DRUGS (3)
  1. REBIF [Suspect]
     Indication: MULTIPLE SCLEROSIS
     Dosage: 44 MCG, 3 IN 1 WEEKS, SUBCUTANEOUS
     Route: 058
     Dates: start: 20050725
  2. LISINOPRIL-HYDROCHLOROTHIAZIDE (PRINZIDE /00977901/) [Concomitant]
  3. FIORICET (AXOTAL /007727001/) [Concomitant]

REACTIONS (4)
  - CELLULITIS [None]
  - INJECTION SITE INFECTION [None]
  - INJECTION SITE MASS [None]
  - INJECTION SITE REACTION [None]
